FAERS Safety Report 9090205 (Version 1)
Quarter: 2013Q1

REPORT INFORMATION
  Report Type: Spontaneous
  Country: US (occurrence: US)
  Receive Date: 20130218
  Receipt Date: 20130218
  Transmission Date: 20140127
  Serious: Yes (Other)
  Sender: FDA-Public Use
  Company Number: PHEH2011US013296

PATIENT
  Sex: Male

DRUGS (6)
  1. GLEEVEC [Suspect]
     Dosage: 1 DF, QD
     Route: 048
  2. CIALIS [Concomitant]
     Dosage: 5 MG, UNK
  3. NORVASC [Concomitant]
     Dosage: 5 MG, UNK
  4. DIOVAN [Concomitant]
     Dosage: 160 MG, UNK
  5. METFORMIN [Concomitant]
     Dosage: 500 MG, UNK
  6. HYDROCHLOROTH [Concomitant]
     Dosage: 12.5 MG, UNK

REACTIONS (2)
  - Diabetes mellitus [Unknown]
  - Erectile dysfunction [Unknown]
